FAERS Safety Report 9375350 (Version 1)
Quarter: 2013Q2

REPORT INFORMATION
  Report Type: Spontaneous
  Country: VE (occurrence: VE)
  Receive Date: 20130628
  Receipt Date: 20130628
  Transmission Date: 20140414
  Serious: Yes (Death, Life-Threatening, Hospitalization)
  Sender: FDA-Public Use
  Company Number: VE-B.I. PHARMACEUTICALS,INC./RIDGEFIELD-2013-RA-00163RA

PATIENT
  Age: 71 Year
  Sex: Male

DRUGS (6)
  1. PRADAXA [Suspect]
     Indication: ATRIAL FIBRILLATION
     Dosage: 220 MG
     Route: 048
     Dates: start: 201210, end: 20130407
  2. NEXIUM [Concomitant]
     Dosage: 40 MG
  3. JANUMET [Concomitant]
  4. ALURON [Concomitant]
     Dosage: 100 MG
  5. COVERSYL [Concomitant]
     Dosage: 2.5 MG
  6. LIPITOR [Concomitant]
     Dosage: 20 MG

REACTIONS (1)
  - Intestinal infarction [Fatal]
